FAERS Safety Report 9613782 (Version 1)
Quarter: 2013Q4

REPORT INFORMATION
  Report Type: Spontaneous
  Country: IT (occurrence: IT)
  Receive Date: 20131010
  Receipt Date: 20131010
  Transmission Date: 20140711
  Serious: Yes (Other)
  Sender: FDA-Public Use
  Company Number: PHHY2013IT111168

PATIENT
  Age: 88 Year
  Sex: Female

DRUGS (10)
  1. FUROSEMIDE [Suspect]
     Dosage: 25 MG, QD
     Route: 048
     Dates: start: 20130101, end: 20130710
  2. LENDORMIN [Suspect]
     Dosage: 0.25 MG, UNK
     Dates: start: 20130101, end: 20130710
  3. PLENDIL [Suspect]
     Dosage: 5 MG, QD
     Route: 048
     Dates: start: 20130101, end: 20130710
  4. NITROCOR [Suspect]
     Dosage: 10 MG, QD
     Route: 062
     Dates: start: 20130101, end: 20130710
  5. SINVACOR [Concomitant]
     Dosage: 20 MG, UNK
  6. PANTECTA [Concomitant]
     Dosage: 40 MG, UNK
  7. SAMYR (ADEMETIONINE) [Concomitant]
     Dosage: 200 MG, UNK
  8. IDEOS [Concomitant]
     Dosage: 500 MG, UNK
  9. PRONTALGIN [Concomitant]
     Dosage: 50 MG, UNK
  10. ACETYLSALICYLIC ACID [Concomitant]

REACTIONS (1)
  - Syncope [Recovering/Resolving]
